FAERS Safety Report 15237698 (Version 1)
Quarter: 2018Q3

REPORT INFORMATION
  Report Type: Spontaneous
  Country: DE (occurrence: DE)
  Receive Date: 20180803
  Receipt Date: 20180803
  Transmission Date: 20181010
  Serious: Yes (Hospitalization)
  Sender: FDA-Public Use
  Company Number: PHHY2018DE062857

PATIENT
  Age: 40 Year
  Sex: Female

DRUGS (3)
  1. METHOTREXATE. [Suspect]
     Active Substance: METHOTREXATE
     Indication: RHEUMATIC DISORDER
     Dosage: 7.5 MG, QW (DAILY DOSE:7.5 MG MILLGRAM(S) EVERY WEEKS)
     Route: 065
     Dates: start: 2015
  2. LEFLUNOMIDE. [Concomitant]
     Active Substance: LEFLUNOMIDE
     Indication: PRODUCT USED FOR UNKNOWN INDICATION
  3. HUMIRA [Suspect]
     Active Substance: ADALIMUMAB
     Indication: RHEUMATIC DISORDER
     Dosage: 40 MG, Q2W (DAILY DOSE: 40 MG MILLGRAM(S) EVERY 2 WEEKS)
     Route: 058
     Dates: start: 201401

REACTIONS (5)
  - Foot deformity [Unknown]
  - Complex regional pain syndrome [Not Recovered/Not Resolved]
  - Foot deformity [Not Recovered/Not Resolved]
  - Metatarsalgia [Not Recovered/Not Resolved]
  - Complication associated with device [Recovered/Resolved]

NARRATIVE: CASE EVENT DATE: 20151214
